FAERS Safety Report 7057275-2 (Version None)
Quarter: 2010Q4

REPORT INFORMATION
  Report Type: 
  Country: None (occurrence: None)
  Receive Date: 20101022
  Receipt Date: 20101012
  Transmission Date: 20110411
  Serious: Yes (Other)
  Sender: FDA-Public Use
  Company Number: US-MYLANLABS-2010S1017399

PATIENT
  Age: 56 Year
  Sex: Female
  Weight: 94.8 kg

DRUGS (19)
  1. FENTANYL [Suspect]
     Indication: FIBROMYALGIA
     Dosage: CHANGED Q72HOURS
     Route: 062
     Dates: start: 20100801
  2. ALPRAZOLAM [Concomitant]
  3. BYETTA [Concomitant]
     Indication: DIABETES MELLITUS
  4. CYMBALTA [Concomitant]
  5. FISH OIL [Concomitant]
  6. FLAXSEED OIL [Concomitant]
  7. LANTUS [Concomitant]
     Indication: DIABETES MELLITUS
  8. LEVOTHYROXINE [Concomitant]
     Indication: HYPOTHYROIDISM
  9. NICOTINAMIDE [Concomitant]
  10. OMEPRAZOLE [Concomitant]
  11. ONDANSETRON [Concomitant]
  12. SIMVASTATIN [Concomitant]
  13. TAURINE [Concomitant]
  14. TIZANIDINE HCL [Concomitant]
  15. TRAZODONE [Concomitant]
  16. VAGIFEM [Concomitant]
  17. VIVELLE-DOT [Concomitant]
     Dosage: CHANGE QW
  18. METFORMIN [Concomitant]
  19. LISINOPRIL [Concomitant]
     Indication: HYPERTENSION
     Dates: end: 20100917

REACTIONS (2)
  - DEHYDRATION [None]
  - HYPOTENSION [None]
